FAERS Safety Report 19898455 (Version 1)
Quarter: 2021Q3

REPORT INFORMATION
  Report Type: Report from Study
  Country: None (occurrence: US)
  Receive Date: 20210930
  Receipt Date: 20210930
  Transmission Date: 20211014
  Serious: Yes (Other)
  Sender: FDA-Public Use
  Company Number: US-GLOBAL BLOOD THERAPEUTICS INC-US-GBT-21-03352

PATIENT
  Age: 30 Year
  Sex: Male

DRUGS (10)
  1. CALCITRIOL (ROLCALTROL) 0.5 MCG [Concomitant]
     Indication: RENAL DISORDER
     Route: 048
     Dates: start: 20200228
  2. CALCIUM ACETATE, PHOSPHAT BIND, (PHOSLO) [Concomitant]
     Indication: SICKLE CELL DISEASE
     Route: 048
     Dates: start: 20200228
  3. HYDRALAZINE (APRESOLINE) [Concomitant]
     Indication: PRODUCT USED FOR UNKNOWN INDICATION
     Route: 048
     Dates: start: 20201109
  4. NORVASC [Concomitant]
     Active Substance: AMLODIPINE BESYLATE
     Indication: PRODUCT USED FOR UNKNOWN INDICATION
     Route: 048
     Dates: start: 20180622
  5. DOXAZOSIN (CARDURA) [Concomitant]
     Indication: PRODUCT USED FOR UNKNOWN INDICATION
     Dosage: NIGHTLY
     Route: 048
     Dates: start: 20200228
  6. OXBRYTA [Suspect]
     Active Substance: VOXELOTOR
     Indication: SICKLE CELL DISEASE
     Dates: start: 20200903, end: 20210415
  7. VITAMIN D3 [Concomitant]
     Active Substance: CHOLECALCIFEROL
     Indication: VITAMIN D
     Route: 048
     Dates: start: 20200520
  8. CELEXA [Concomitant]
     Active Substance: CITALOPRAM HYDROBROMIDE
     Indication: PAIN
     Route: 048
     Dates: start: 20181130
  9. FOLIC ACID (FOLVITE) TABLET [Concomitant]
     Indication: SICKLE CELL DISEASE
     Route: 048
     Dates: start: 20180323
  10. TENORMIN [Concomitant]
     Active Substance: ATENOLOL
     Indication: PRODUCT USED FOR UNKNOWN INDICATION
     Route: 048
     Dates: start: 20181130

REACTIONS (1)
  - Renal failure [Recovered/Resolved]

NARRATIVE: CASE EVENT DATE: 20210210
